FAERS Safety Report 10051036 (Version 3)
Quarter: 2016Q2

REPORT INFORMATION
  Report Type: Report from Study
  Country: US (occurrence: US)
  Receive Date: 20140401
  Receipt Date: 20160622
  Transmission Date: 20160815
  Serious: Yes (Life-Threatening, Hospitalization)
  Sender: FDA-Public Use
  Company Number: US-009507513-1403USA013799

PATIENT
  Age: 53 Year
  Sex: Male
  Weight: 70.8 kg

DRUGS (7)
  1. ETOPOSIDE. [Suspect]
     Active Substance: ETOPOSIDE
     Indication: NON-HODGKIN^S LYMPHOMA
     Dosage: 50 MG/M2/DAY, CONTINUOS IV INFUSION OVER 96 HOUR ON DAYS 1-4
     Route: 042
     Dates: start: 20140314, end: 20140317
  2. PREDNISONE. [Suspect]
     Active Substance: PREDNISONE
     Indication: NON-HODGKIN^S LYMPHOMA
     Dosage: 60 MG/M2/DAY ON DAYS 1-5
     Route: 048
     Dates: start: 20140314, end: 20140318
  3. VINCRISTINE [Suspect]
     Active Substance: VINCRISTINE
     Indication: NON-HODGKIN^S LYMPHOMA
     Dosage: 0.4 MG/M2/DAY CONTINUOUS IV INFUSION OVER 96 HOURS ON DAYS 1-4
     Route: 042
     Dates: start: 20140314, end: 20140317
  4. CYCLOPHOSPHAMIDE. [Suspect]
     Active Substance: CYCLOPHOSPHAMIDE
     Indication: NON-HODGKIN^S LYMPHOMA
     Dosage: UNK UNK, CYCLICAL
     Route: 042
     Dates: start: 20140314, end: 20140318
  5. RITUXIMAB [Suspect]
     Active Substance: RITUXIMAB
     Indication: NON-HODGKIN^S LYMPHOMA
     Dosage: 375 MG/M2 ON DAY 1
     Route: 042
     Dates: start: 20140314, end: 20140314
  6. VORINOSTAT [Suspect]
     Active Substance: VORINOSTAT
     Indication: NON-HODGKIN^S LYMPHOMA
     Dosage: 300 MG, PO ON DAYS 1-5
     Route: 048
     Dates: start: 20140314, end: 20140318
  7. DOXORUBICIN [Suspect]
     Active Substance: DOXORUBICIN
     Indication: NON-HODGKIN^S LYMPHOMA
     Dosage: 10 MG/M2,/DAY CONTINUOUS IV INFUSION OVER 96 HOURS ON DAYS 1-4
     Route: 042
     Dates: start: 20140314, end: 20140317

REACTIONS (3)
  - Platelet count decreased [Recovered/Resolved with Sequelae]
  - Febrile neutropenia [Recovered/Resolved with Sequelae]
  - White blood cell count decreased [Recovered/Resolved with Sequelae]

NARRATIVE: CASE EVENT DATE: 20140324
